FAERS Safety Report 16775080 (Version 2)
Quarter: 2019Q4

REPORT INFORMATION
  Report Type: Report from Study
  Country: JP (occurrence: JP)
  Receive Date: 20190905
  Receipt Date: 20191115
  Transmission Date: 20200122
  Serious: Yes (Other)
  Sender: FDA-Public Use
  Company Number: JP-AUROBINDO-AUR-APL-2019-058339

PATIENT
  Age: 75 Year
  Sex: Male
  Weight: 61.6 kg

DRUGS (25)
  1. FOLOTYN [Suspect]
     Active Substance: PRALATREXATE
     Dosage: 30 MILLIGRAM/SQ. METER, DAILY
     Route: 042
     Dates: start: 20190529
  2. FRESMIN S [Concomitant]
     Active Substance: HYDROXOCOBALAMIN
     Indication: PROPHYLAXIS
     Dosage: 2 MILLIGRAM
     Route: 042
     Dates: start: 20190410
  3. LEUCOVORIN. [Concomitant]
     Active Substance: LEUCOVORIN
     Dosage: 15 DOSAGE FORM, ONCE A DAY
     Route: 048
     Dates: start: 20190419, end: 20190419
  4. LEUCOVORIN. [Concomitant]
     Active Substance: LEUCOVORIN
     Dosage: 9 DOSAGE FORM, ONCE A DAY
     Route: 048
     Dates: start: 20190517, end: 20190517
  5. LANSOPRAZOLE. [Concomitant]
     Active Substance: LANSOPRAZOLE
     Indication: GASTRITIS
     Dosage: 30 MILLIGRAM
     Route: 048
  6. FOLOTYN [Suspect]
     Active Substance: PRALATREXATE
     Indication: PERIPHERAL T-CELL LYMPHOMA UNSPECIFIED
     Dosage: 30 MILLIGRAM/SQ. METER, DAILY
     Route: 042
     Dates: start: 20190417, end: 20190423
  7. LEUCOVORIN. [Concomitant]
     Active Substance: LEUCOVORIN
     Dosage: 9 DOSAGE FORM, ONCE A DAY
     Route: 048
     Dates: start: 20190510, end: 20190510
  8. LEUCOVORIN. [Concomitant]
     Active Substance: LEUCOVORIN
     Dosage: 9 DOSAGE FORM, ONCE A DAY
     Route: 048
     Dates: start: 20190524, end: 20190524
  9. LEUCOVORIN. [Concomitant]
     Active Substance: LEUCOVORIN
     Dosage: 9 DOSAGE FORM, ONCE A DAY
     Route: 048
     Dates: start: 20190531, end: 20190531
  10. FOLOTYN [Suspect]
     Active Substance: PRALATREXATE
     Dosage: 30 MILLIGRAM/SQ. METER, DAILY
     Route: 042
     Dates: start: 20190515
  11. FOLOTYN [Suspect]
     Active Substance: PRALATREXATE
     Dosage: 30 MILLIGRAM/SQ. METER, DAILY
     Route: 042
     Dates: start: 20190522
  12. LEUCOVORIN. [Concomitant]
     Active Substance: LEUCOVORIN
     Dosage: 9 DOSAGE FORM, ONCE A DAY
     Route: 048
     Dates: start: 20190523, end: 20190523
  13. GRANISETRON [Concomitant]
     Active Substance: GRANISETRON
     Indication: PROPHYLAXIS OF NAUSEA AND VOMITING
     Dosage: 3 MILLIGRAM, EVERY WEEK
     Route: 042
     Dates: start: 20190417, end: 20190529
  14. FOLOTYN [Suspect]
     Active Substance: PRALATREXATE
     Dosage: 30 MILLIGRAM/SQ. METER, DAILY
     Route: 042
     Dates: start: 20190508, end: 20190529
  15. PANVITAN [Concomitant]
     Active Substance: VITAMINS
     Indication: PROPHYLAXIS
     Dosage: 2.5 GRAM, DAILY
     Route: 065
     Dates: start: 20190410, end: 20190701
  16. LEUCOVORIN. [Concomitant]
     Active Substance: LEUCOVORIN
     Dosage: 9 DOSAGE FORM, ONCE A DAY
     Route: 048
     Dates: start: 20190424, end: 20190424
  17. SENNOSIDE [Concomitant]
     Active Substance: SENNOSIDES
     Indication: CONSTIPATION
     Dosage: 108 MILLIGRAM, ONCE A DAY
  18. LEUCOVORIN. [Concomitant]
     Active Substance: LEUCOVORIN
     Dosage: 9 DOSAGE FORM, ONCE A DAY
     Route: 048
     Dates: start: 20190425, end: 20190425
  19. FOLOTYN [Suspect]
     Active Substance: PRALATREXATE
     Dosage: 30 MILLIGRAM/SQ. METER, DAILY
     Route: 042
     Dates: start: 20190423
  20. LEUCOVORIN. [Concomitant]
     Active Substance: LEUCOVORIN
     Indication: PRODUCT USED FOR UNKNOWN INDICATION
     Dosage: 15 DOSAGE FORM, ONCE A DAY
     Route: 048
     Dates: start: 20190418, end: 20190418
  21. LEUCOVORIN. [Concomitant]
     Active Substance: LEUCOVORIN
     Dosage: 9 DOSAGE FORM, ONCE A DAY
     Route: 048
     Dates: start: 20190516, end: 20190516
  22. LEUCOVORIN. [Concomitant]
     Active Substance: LEUCOVORIN
     Dosage: 9 DOSAGE FORM, ONCE A DAY
     Route: 048
     Dates: start: 20190530, end: 20190530
  23. LEUCOVORIN. [Concomitant]
     Active Substance: LEUCOVORIN
     Dosage: 9 DOSAGE FORM, ONCE A DAY
     Route: 048
     Dates: start: 20190509, end: 20190509
  24. LEUCOVORIN. [Concomitant]
     Active Substance: LEUCOVORIN
     Dosage: UNK
     Route: 065
     Dates: start: 20190418, end: 20190531
  25. MAGNESIUM OXIDE. [Concomitant]
     Active Substance: MAGNESIUM OXIDE
     Indication: CONSTIPATION
     Dosage: 2000 MILLIGRAM, ONCE A DAY
     Route: 048

REACTIONS (3)
  - Malignant neoplasm progression [Unknown]
  - Peripheral sensory neuropathy [Not Recovered/Not Resolved]
  - Pyrexia [Recovered/Resolved]

NARRATIVE: CASE EVENT DATE: 20190418
